FAERS Safety Report 7402940-8 (Version None)
Quarter: 2011Q1

REPORT INFORMATION
  Report Type: 
  Country: None (occurrence: None)
  Receive Date: 20110330
  Receipt Date: 20110315
  Transmission Date: 20110831
  Serious: Yes (Hospitalization)
  Sender: FDA-Public Use
  Company Number: DAV-AE-AMO-11-014

PATIENT
  Age: 76 Year
  Sex: Female

DRUGS (3)
  1. LANSOPRAZOLE [Concomitant]
  2. STRONTIUM RANELATE [Concomitant]
  3. AMOXICILLIN [Suspect]

REACTIONS (2)
  - SKIN TEST POSITIVE [None]
  - DRUG RASH WITH EOSINOPHILIA AND SYSTEMIC SYMPTOMS [None]
